FAERS Safety Report 5139769-X (Version None)
Quarter: 2006Q4

REPORT INFORMATION
  Report Type: 
  Country: None (occurrence: None)
  Receive Date: 20061024
  Receipt Date: 20061011
  Transmission Date: 20070319
  Serious: Yes (Life-Threatening)
  Sender: FDA-Public Use
  Company Number: 231147

PATIENT
  Age: 80 Year
  Sex: Male
  Weight: 79 kg

DRUGS (2)
  1. MABTHERA (RITUXIMAB) CONC FOR SOLUTION FOR INFUSION [Suspect]
     Indication: MANTLE CELL LYMPHOMA
     Dosage: 700 MG, INTRAVENOUS
     Route: 042
     Dates: start: 20041011, end: 20050620
  2. BENDAMUSTINE (BENDAMUSTINE) [Suspect]
     Indication: MANTLE CELL LYMPHOMA
     Dosage: 175 MG, INTRAVENOUS
     Route: 042
     Dates: start: 20041012, end: 20050302

REACTIONS (1)
  - T-CELL LYMPHOMA [None]
